FAERS Safety Report 20228488 (Version 7)
Quarter: 2022Q2

REPORT INFORMATION
  Report Type: Report from Study
  Country: US (occurrence: US)
  Receive Date: 20211225
  Receipt Date: 20220422
  Transmission Date: 20220720
  Serious: Yes (Disabling, Other)
  Sender: FDA-Public Use
  Company Number: US-NOVARTISTESTPH-NVSC2021US295334

PATIENT
  Age: 69 Year
  Sex: Female

DRUGS (16)
  1. PROMACTA [Suspect]
     Active Substance: ELTROMBOPAG OLAMINE
     Indication: Aplastic anaemia
     Dosage: 150 MG, QD
     Route: 048
  2. PROMACTA [Suspect]
     Active Substance: ELTROMBOPAG OLAMINE
     Indication: Thrombocytopenia
     Dosage: 150 MG
     Route: 048
  3. PROMACTA [Suspect]
     Active Substance: ELTROMBOPAG OLAMINE
     Dosage: 150 MG, QD
     Route: 048
     Dates: start: 20211129
  4. PROMACTA [Suspect]
     Active Substance: ELTROMBOPAG OLAMINE
     Dosage: 150 MG, QD (TOTAL 60 TABLETS)
     Route: 048
     Dates: start: 20220105
  5. PROMACTA [Suspect]
     Active Substance: ELTROMBOPAG OLAMINE
     Dosage: 200 MG, QD (ONE 50 MG TABLET AND TWO 75 MG TABLETS)
     Route: 065
     Dates: start: 20220323
  6. CYCLOSPORINE [Concomitant]
     Active Substance: CYCLOSPORINE
     Indication: Product used for unknown indication
     Dosage: 100 MG, BID
     Route: 048
     Dates: start: 20211121
  7. CYCLOSPORINE [Concomitant]
     Active Substance: CYCLOSPORINE
     Dosage: 25 MG, BID
     Route: 048
  8. PREDNISONE [Concomitant]
     Active Substance: PREDNISONE
     Indication: Product used for unknown indication
     Dosage: UNK
     Route: 065
  9. ACYCLOVIR [Concomitant]
     Active Substance: ACYCLOVIR
     Indication: Product used for unknown indication
     Dosage: 400 UNK, BID
     Route: 065
  10. LEVAQUIN [Concomitant]
     Active Substance: LEVOFLOXACIN
     Indication: Product used for unknown indication
     Dosage: 500 UNK, QD
     Route: 065
  11. DIFLUCAN [Concomitant]
     Active Substance: FLUCONAZOLE
     Indication: Product used for unknown indication
     Dosage: UNK
     Route: 065
  12. ONDANSETRON [Concomitant]
     Active Substance: ONDANSETRON
     Indication: Product used for unknown indication
     Dosage: 8 MG, (EVERY 8 HOURS) FOR NAUSEA AND VOMITING
     Route: 048
     Dates: start: 20211115
  13. PROCHLORPERAZINE [Concomitant]
     Active Substance: PROCHLORPERAZINE
     Indication: Product used for unknown indication
     Dosage: 10 MG (3 TIMES DAILY, AS NEEDED FOR NAUSEA)
     Route: 048
     Dates: start: 20211115
  14. PENTAMIDINE [Concomitant]
     Active Substance: PENTAMIDINE
     Indication: Product used for unknown indication
     Dosage: 6 ML
     Route: 065
     Dates: start: 20211122
  15. CHOLECALCIFEROL [Concomitant]
     Active Substance: CHOLECALCIFEROL
     Indication: Product used for unknown indication
     Dosage: 500 UG, QD (2000 UNIT)
     Route: 048
  16. MAGNESIUM [Concomitant]
     Active Substance: MAGNESIUM
     Indication: Product used for unknown indication
     Dosage: 4 DOSAGE FORM, QD
     Route: 048

REACTIONS (23)
  - Paroxysmal nocturnal haemoglobinuria [Unknown]
  - Neutrophil count decreased [Recovering/Resolving]
  - Neutrophil count increased [Recovering/Resolving]
  - Haemoglobin decreased [Unknown]
  - Therapy non-responder [Unknown]
  - Reticulocyte count increased [Recovering/Resolving]
  - Nasopharyngitis [Unknown]
  - Pyrexia [Recovering/Resolving]
  - Hypotension [Recovering/Resolving]
  - COVID-19 [Recovered/Resolved]
  - Reticulocyte count decreased [Unknown]
  - Chills [Unknown]
  - Tachycardia [Unknown]
  - Tremor [Unknown]
  - Fatigue [Unknown]
  - Hot flush [Unknown]
  - Asthenia [Unknown]
  - Scleral pigmentation [Unknown]
  - Snoring [Unknown]
  - Dyspnoea [Unknown]
  - Arthralgia [Unknown]
  - Melanocytic naevus [Unknown]
  - Insomnia [Unknown]

NARRATIVE: CASE EVENT DATE: 20210930
